FAERS Safety Report 12638002 (Version 2)
Quarter: 2016Q4

REPORT INFORMATION
  Report Type: Spontaneous
  Country: US (occurrence: US)
  Receive Date: 20160809
  Receipt Date: 20161108
  Transmission Date: 20170207
  Serious: No
  Sender: FDA-Public Use
  Company Number: US-SA-2016SA137186

PATIENT
  Age: 59 Year
  Sex: Male

DRUGS (2)
  1. ALIROCUMAB PREFILLED PEN [Concomitant]
     Active Substance: ALIROCUMAB
     Indication: HYPERLIPIDAEMIA
     Dates: start: 20160519, end: 20160923
  2. PRALUENT [Suspect]
     Active Substance: ALIROCUMAB
     Indication: HYPERLIPIDAEMIA
     Route: 058
     Dates: start: 20160519, end: 20160923

REACTIONS (4)
  - Skin irritation [Unknown]
  - Muscle spasms [Not Recovered/Not Resolved]
  - Memory impairment [Unknown]
  - Panic attack [Unknown]

NARRATIVE: CASE EVENT DATE: 20160701
